FAERS Safety Report 15235611 (Version 5)
Quarter: 2018Q4

REPORT INFORMATION
  Report Type: Spontaneous
  Country: JP (occurrence: JP)
  Receive Date: 20180803
  Receipt Date: 20181005
  Transmission Date: 20190204
  Serious: Yes (Death, Other)
  Sender: FDA-Public Use
  Company Number: JP-ASTRAZENECA-2018SE97048

PATIENT
  Age: 28229 Day
  Sex: Female
  Weight: 63 kg

DRUGS (17)
  1. MAGMITT [Suspect]
     Active Substance: MAGNESIUM OXIDE
     Indication: CONSTIPATION
     Route: 048
     Dates: start: 20180622, end: 20180705
  2. CRESTOR OD [Suspect]
     Active Substance: ROSUVASTATIN CALCIUM
     Indication: HYPERCHOLESTEROLAEMIA
     Route: 048
     Dates: end: 20180529
  3. NORVASC [Concomitant]
     Active Substance: AMLODIPINE BESYLATE
     Indication: HYPERTENSION
     Route: 048
     Dates: end: 20180529
  4. LINZESS [Suspect]
     Active Substance: LINACLOTIDE
     Indication: CONSTIPATION
     Route: 048
     Dates: start: 20180212, end: 20180508
  5. TSUMURA RIKKUNSHITO EXTRACT [Concomitant]
     Route: 048
     Dates: start: 20180212, end: 20180529
  6. NEXIUM [Suspect]
     Active Substance: ESOMEPRAZOLE MAGNESIUM
     Indication: GASTRIC ULCER
     Route: 048
     Dates: end: 20180529
  7. MAGNESIUM OXIDE. [Concomitant]
     Active Substance: MAGNESIUM OXIDE
     Indication: CONSTIPATION
     Dosage: DOSE UNKNOWN
     Route: 048
     Dates: end: 20180222
  8. LOXOPROFEN [Concomitant]
     Active Substance: LOXOPROFEN
  9. CRESTOR OD [Suspect]
     Active Substance: ROSUVASTATIN CALCIUM
     Indication: DYSLIPIDAEMIA
     Route: 048
     Dates: end: 20180529
  10. RALOXIFENE HYDROCHLORIDE. [Suspect]
     Active Substance: RALOXIFENE HYDROCHLORIDE
     Indication: OSTEOPOROSIS
     Route: 048
     Dates: start: 20180221, end: 20180508
  11. SORBITOL HARTMANN [Suspect]
     Active Substance: SORBITOL
     Indication: CONSTIPATION
     Dosage: DOSE UNKNOWN
     Route: 065
  12. ZOLPIDEM TARTRATE. [Concomitant]
     Active Substance: ZOLPIDEM TARTRATE
     Indication: INSOMNIA
     Route: 048
     Dates: end: 20180529
  13. EDIROL [Suspect]
     Active Substance: ELDECALCITOL
     Indication: OSTEOPOROSIS
     Route: 048
     Dates: start: 20180221, end: 20180508
  14. AMITIZA [Suspect]
     Active Substance: LUBIPROSTONE
     Dosage: DOSE UNKNOWN
     Route: 065
  15. MAGMITT [Suspect]
     Active Substance: MAGNESIUM OXIDE
     Indication: CONSTIPATION
     Route: 048
     Dates: start: 20180223, end: 20180621
  16. PURSENNID [Suspect]
     Active Substance: SENNOSIDES A AND B
     Indication: CONSTIPATION
     Route: 048
     Dates: end: 20180529
  17. VESICARE [Concomitant]
     Active Substance: SOLIFENACIN SUCCINATE
     Indication: HYPERTONIC BLADDER
     Route: 048
     Dates: end: 20180529

REACTIONS (4)
  - Ascites [Unknown]
  - Subacute hepatic failure [Fatal]
  - Drug-induced liver injury [Fatal]
  - Bacteraemia [Fatal]

NARRATIVE: CASE EVENT DATE: 20180507
